FAERS Safety Report 10163310 (Version 1)
Quarter: 2014Q2

REPORT INFORMATION
  Report Type: Spontaneous
  Country: BE (occurrence: BE)
  Receive Date: 20140509
  Receipt Date: 20140509
  Transmission Date: 20141212
  Serious: Yes (Other)
  Sender: FDA-Public Use
  Company Number: BE-PFIZER INC-2014127604

PATIENT
  Age: 75 Year
  Sex: Male

DRUGS (4)
  1. CHAMPIX [Suspect]
     Indication: SMOKING CESSATION THERAPY
     Dosage: 1 MG, UNK
     Route: 048
  2. ZESTRIL [Concomitant]
     Dosage: 20 MG, 1X/DAY
  3. TEGRETOL [Concomitant]
     Dosage: 20 MG, 1X/DAY
     Route: 048
  4. ASAFLOW [Concomitant]
     Dosage: 80 MG, 1X/DAY
     Route: 048

REACTIONS (5)
  - Syncope [Unknown]
  - Weight decreased [Recovering/Resolving]
  - Decreased appetite [Recovering/Resolving]
  - Nausea [Recovering/Resolving]
  - Affective disorder [Unknown]
